FAERS Safety Report 18479108 (Version 1)
Quarter: 2020Q4

REPORT INFORMATION
  Report Type: Spontaneous
  Country: TH (occurrence: TH)
  Receive Date: 20201109
  Receipt Date: 20201109
  Transmission Date: 20210114
  Serious: Yes (Other)
  Sender: FDA-Public Use
  Company Number: TH-SUN PHARMACEUTICAL INDUSTRIES LTD-2020R1-265983

PATIENT
  Age: 32 Year
  Sex: Male

DRUGS (7)
  1. MOXIFLOXACIN. [Suspect]
     Active Substance: MOXIFLOXACIN
     Indication: OPHTHALMIC HERPES SIMPLEX
     Dosage: UNK
     Route: 061
  2. AMIKACIN ORAL [Suspect]
     Active Substance: AMIKACIN
     Indication: OPHTHALMIC HERPES SIMPLEX
     Dosage: UNK
     Route: 065
  3. MOXIFLOXACIN. [Suspect]
     Active Substance: MOXIFLOXACIN
     Indication: OPHTHALMIC HERPES SIMPLEX
     Dosage: 2 HOURLY
     Route: 047
  4. AZITHROMYCIN 1.5% [Suspect]
     Active Substance: AZITHROMYCIN
     Indication: OPHTHALMIC HERPES SIMPLEX
     Dosage: UNK
     Route: 061
  5. CLARITHROMYCIN. [Suspect]
     Active Substance: CLARITHROMYCIN
     Indication: OPHTHALMIC HERPES SIMPLEX
     Dosage: UNK
     Route: 065
  6. RIFAMPICIN [Suspect]
     Active Substance: RIFAMPIN
     Indication: OPHTHALMIC HERPES SIMPLEX
     Dosage: UNK
     Route: 048
  7. AMIKACIN. [Suspect]
     Active Substance: AMIKACIN
     Indication: OPHTHALMIC HERPES SIMPLEX
     Dosage: UNK
     Route: 061

REACTIONS (1)
  - Disease progression [Unknown]
